FAERS Safety Report 9521266 (Version 1)
Quarter: 2013Q1

REPORT INFORMATION
  Report Type: Spontaneous
  Country: US (occurrence: None)
  Receive Date: 20130305
  Receipt Date: 20130305
  Transmission Date: 20140127
  Serious: Yes (Hospitalization)
  Sender: FDA-Public Use
  Company Number: 163-21880-12072060

PATIENT
  Sex: Male

DRUGS (1)
  1. REVLIMID [Suspect]
     Indication: PLASMA CELL MYELOMA
     Dosage: 21 IN 21 D
     Route: 048
     Dates: start: 200910

REACTIONS (9)
  - Dizziness [None]
  - Fatigue [None]
  - Constipation [None]
  - Diarrhoea [None]
  - Muscle spasms [None]
  - Dyspnoea [None]
  - Pain [None]
  - Pain in extremity [None]
  - Dry skin [None]
